FAERS Safety Report 13166416 (Version 1)
Quarter: 2017Q1

REPORT INFORMATION
  Report Type: Spontaneous
  Country: US (occurrence: US)
  Receive Date: 20170127
  Receipt Date: 20170127
  Transmission Date: 20170428
  Serious: Yes (Disabling)
  Sender: FDA-Public Use
  Company Number: None

PATIENT
  Sex: Female
  Weight: 62.2 kg

DRUGS (5)
  1. E [Concomitant]
  2. A [Concomitant]
  3. VITAMIN D [Concomitant]
     Active Substance: CHOLECALCIFEROL
  4. FOSAMAX [Suspect]
     Active Substance: ALENDRONATE SODIUM
     Indication: OSTEOPOROSIS
     Dosage: ?          QUANTITY:HIST ANY RELEVANT TESTS O;?
     Route: 048
     Dates: start: 200405
  5. HAIR VITAMINS [Concomitant]

REACTIONS (2)
  - Pain [None]
  - Malaise [None]

NARRATIVE: CASE EVENT DATE: 2004
